FAERS Safety Report 23966993 (Version 1)
Quarter: 2024Q2

REPORT INFORMATION
  Report Type: Spontaneous
  Country: US (occurrence: US)
  Receive Date: 20240612
  Receipt Date: 20240612
  Transmission Date: 20240715
  Serious: No
  Sender: FDA-Public Use
  Company Number: US-SANDOZ-SDZ2024US056967

PATIENT
  Sex: Female

DRUGS (1)
  1. METHOTREXATE [Suspect]
     Active Substance: METHOTREXATE
     Indication: Psoriasis
     Dosage: UNK, OTHER (1X EVERY 3 DAYS)
     Route: 065

REACTIONS (4)
  - Feeding disorder [Unknown]
  - Bedridden [Unknown]
  - Feeling abnormal [Unknown]
  - Nausea [Unknown]
